FAERS Safety Report 26056200 (Version 1)
Quarter: 2025Q4

REPORT INFORMATION
  Report Type: Spontaneous
  Country: EU (occurrence: EU)
  Receive Date: 20251118
  Receipt Date: 20251118
  Transmission Date: 20260117
  Serious: Yes (Life-Threatening, Other)
  Sender: VIIV
  Company Number: None

PATIENT
  Age: 39 Year
  Sex: Male
  Weight: 67 kg

DRUGS (1)
  1. DOVATO [Suspect]
     Active Substance: DOLUTEGRAVIR SODIUM\LAMIVUDINE
     Indication: Product used for unknown indication
     Dosage: 350 MG, QD (ONE TABLET A DAY FROM 2018 TO THE PRESENT)

REACTIONS (1)
  - Brugada syndrome [Not Recovered/Not Resolved]

NARRATIVE: CASE EVENT DATE: 20250918
